FAERS Safety Report 16668714 (Version 2)
Quarter: 2019Q3

REPORT INFORMATION
  Report Type: Report from Study
  Country: BE (occurrence: BE)
  Receive Date: 20190805
  Receipt Date: 20190815
  Transmission Date: 20191004
  Serious: Yes (Hospitalization)
  Sender: FDA-Public Use
  Company Number: BE-PFIZER INC-2019002164

PATIENT
  Age: 46 Year
  Sex: Female
  Weight: 63 kg

DRUGS (15)
  1. IRINOTECAN HCL [Suspect]
     Active Substance: IRINOTECAN HYDROCHLORIDE
     Dosage: 1, EVERY TWO WEEKS
     Route: 042
     Dates: start: 20180613, end: 20180718
  2. BEVACIZUMAB. [Suspect]
     Active Substance: BEVACIZUMAB
     Indication: COLORECTAL CANCER METASTATIC
     Dosage: 1, EVERY 2 WEEKS
     Route: 042
     Dates: start: 20180305, end: 20180718
  3. IRINOTECAN HCL [Suspect]
     Active Substance: IRINOTECAN HYDROCHLORIDE
     Dosage: 240 MG, CYCLIC, EVERY 2 WEEKS
     Route: 042
     Dates: end: 20180718
  4. FLUOROURACIL. [Suspect]
     Active Substance: FLUOROURACIL
     Indication: COLORECTAL CANCER METASTATIC
     Dosage: 3200 MG, CYCLIC (EVERY TWO WEEKS)
     Route: 042
     Dates: start: 20180305, end: 20180530
  5. CAPECITABINE. [Suspect]
     Active Substance: CAPECITABINE
     Dosage: 1, EVERY 2 WEEKS
     Route: 016
     Dates: start: 20180613, end: 20180718
  6. ENTEROL [SACCHAROMYCES BOULARDII] [Concomitant]
     Indication: PROPHYLAXIS
     Dosage: UNK
     Route: 065
     Dates: start: 20180403
  7. FLUOROURACIL. [Suspect]
     Active Substance: FLUOROURACIL
     Dosage: 3200 MG, EVERY 2 WEEKS
     Route: 042
     Dates: start: 20180718
  8. LEUCOVORIN [FOLINIC ACID] [Suspect]
     Active Substance: LEUCOVORIN
     Dosage: 3200 MG, EVERY 2 WEEKS
     Route: 042
     Dates: start: 20180718
  9. TRAMADOL HYDROCHLORIDE. [Concomitant]
     Active Substance: TRAMADOL HYDROCHLORIDE
     Indication: ADVERSE EVENT
     Dosage: UNK
     Dates: start: 20180409
  10. LEUCOVORIN [FOLINIC ACID] [Suspect]
     Active Substance: LEUCOVORIN
     Dosage: 3200 MG, CYCLIC (EVERY TWO WEEKS)
     Route: 042
     Dates: start: 20180613, end: 20180718
  11. IRINOTECAN HCL [Suspect]
     Active Substance: IRINOTECAN HYDROCHLORIDE
     Indication: COLORECTAL CANCER METASTATIC
     Dosage: 1, EVERY 2 WEEKS
     Route: 042
     Dates: start: 20180305, end: 20180530
  12. BEVACIZUMAB. [Suspect]
     Active Substance: BEVACIZUMAB
     Dosage: 1, EVERY 2 WEEKS
     Route: 042
     Dates: start: 20180718
  13. FLUOROURACIL. [Suspect]
     Active Substance: FLUOROURACIL
     Dosage: 3200 MG, CYCLIC (EVERY TWO WEEKS)
     Route: 042
     Dates: start: 20180613, end: 20180718
  14. CAPECITABINE. [Suspect]
     Active Substance: CAPECITABINE
     Indication: COLORECTAL CANCER METASTATIC
     Dosage: 1, EVERY 2 WEEKS
     Route: 042
     Dates: start: 20180305, end: 20180530
  15. LEUCOVORIN [FOLINIC ACID] [Suspect]
     Active Substance: LEUCOVORIN
     Indication: COLORECTAL CANCER METASTATIC
     Dosage: 3200 MG, CYCLIC (EVERY TWO WEEKS)
     Route: 042
     Dates: start: 20180305, end: 20180530

REACTIONS (7)
  - Pain [Not Recovered/Not Resolved]
  - Colitis [Not Recovered/Not Resolved]
  - Anxiety [Not Recovered/Not Resolved]
  - Diarrhoea [Not Recovered/Not Resolved]
  - Fatigue [Not Recovered/Not Resolved]
  - Constipation [Not Recovered/Not Resolved]
  - Asthenia [Not Recovered/Not Resolved]

NARRATIVE: CASE EVENT DATE: 20180403
